FAERS Safety Report 12232023 (Version 2)
Quarter: 2017Q1

REPORT INFORMATION
  Report Type: Spontaneous
  Country: US (occurrence: US)
  Receive Date: 20160401
  Receipt Date: 20170112
  Transmission Date: 20170428
  Serious: Yes (Other)
  Sender: FDA-Public Use
  Company Number: US-ELI_LILLY_AND_COMPANY-US201603011174

PATIENT
  Age: 38 Year
  Sex: Female
  Weight: 102.4 kg

DRUGS (7)
  1. CYMBALTA [Suspect]
     Active Substance: DULOXETINE HYDROCHLORIDE
     Dosage: 60 MG, QD
     Route: 048
     Dates: start: 20130221
  2. CYMBALTA [Suspect]
     Active Substance: DULOXETINE HYDROCHLORIDE
     Indication: PAIN
     Dosage: 30 MG, QD
     Route: 048
     Dates: end: 20130221
  3. CELEBREX [Concomitant]
     Active Substance: CELECOXIB
     Indication: PRODUCT USED FOR UNKNOWN INDICATION
     Dosage: 200 MG, QD
     Route: 048
  4. DICLOFENAC SODIUM. [Concomitant]
     Active Substance: DICLOFENAC SODIUM
     Indication: PRODUCT USED FOR UNKNOWN INDICATION
     Dosage: 75 MG, UNKNOWN
     Route: 048
  5. CYMBALTA [Suspect]
     Active Substance: DULOXETINE HYDROCHLORIDE
     Indication: DEPRESSION
     Dosage: 30 MG, BID
     Route: 048
  6. CYCLOBENZAPRINE HCL [Concomitant]
     Active Substance: CYCLOBENZAPRINE HYDROCHLORIDE
     Indication: PRODUCT USED FOR UNKNOWN INDICATION
     Dosage: 10 MG, EACH EVENING
     Route: 048
  7. HYDROCODONE BITARTRATE AND ACETAMINOPHEN [Concomitant]
     Active Substance: ACETAMINOPHEN\HYDROCODONE BITARTRATE
     Dosage: UNK, UNKNOWN
     Route: 048

REACTIONS (26)
  - Hypomania [Unknown]
  - Tremor [Unknown]
  - Mood swings [Unknown]
  - Suicidal ideation [Unknown]
  - Vertigo [Unknown]
  - Irritability [Unknown]
  - Insomnia [Unknown]
  - Nightmare [Unknown]
  - Hyperhidrosis [Unknown]
  - Seizure [Unknown]
  - Withdrawal syndrome [Unknown]
  - Agitation [Unknown]
  - Affect lability [Unknown]
  - Sensory disturbance [Unknown]
  - Fatigue [Unknown]
  - Tinnitus [Unknown]
  - Sleep disorder [Unknown]
  - Nausea [Unknown]
  - Confusional state [Unknown]
  - Lethargy [Unknown]
  - Dizziness [Unknown]
  - Paraesthesia [Unknown]
  - Diarrhoea [Unknown]
  - Vomiting [Unknown]
  - Anxiety [Unknown]
  - Headache [Unknown]

NARRATIVE: CASE EVENT DATE: 20150512
